FAERS Safety Report 9648735 (Version 1)
Quarter: 2013Q4

REPORT INFORMATION
  Report Type: Spontaneous
  Country: US (occurrence: None)
  Receive Date: 20131025
  Receipt Date: 20131025
  Transmission Date: 20140711
  Serious: Yes (Hospitalization)
  Sender: FDA-Public Use
  Company Number: None

PATIENT
  Age: 46 Year
  Sex: Male

DRUGS (12)
  1. TIGECYCLINE [Suspect]
     Indication: OSTEOMYELITIS
     Route: 042
     Dates: start: 20110715, end: 20110718
  2. AMITRIPTYLINE [Concomitant]
  3. METOPROLOL [Concomitant]
  4. TAMSULOSIN [Concomitant]
  5. CLOPIDOGREL [Concomitant]
  6. CYCLOSPORINE [Concomitant]
  7. EZETIMIBE [Concomitant]
  8. CITALOPRAM [Concomitant]
  9. DILTIAZEM [Concomitant]
  10. CARVEDILOL [Concomitant]
  11. DOCUSATE [Concomitant]
  12. MVI PEDIATRIC [Concomitant]

REACTIONS (2)
  - Nausea [None]
  - Vomiting [None]
